FAERS Safety Report 20503692 (Version 1)
Quarter: 2022Q1

REPORT INFORMATION
  Report Type: Spontaneous
  Country: FR (occurrence: FR)
  Receive Date: 20220222
  Receipt Date: 20220222
  Transmission Date: 20220423
  Serious: Yes (Hospitalization)
  Sender: FDA-Public Use
  Company Number: FR-UCBSA-2022009040

PATIENT
  Age: 5 Year
  Sex: Male
  Weight: 23 kg

DRUGS (1)
  1. KEPPRA [Suspect]
     Active Substance: LEVETIRACETAM
     Indication: Product used for unknown indication
     Dosage: 100MG ORAL SOLUTION  300ML
     Route: 048

REACTIONS (5)
  - Headache [Unknown]
  - Vertigo [Unknown]
  - Vomiting [Unknown]
  - Aphasia [Unknown]
  - Extra dose administered [Unknown]

NARRATIVE: CASE EVENT DATE: 20220210
